FAERS Safety Report 7344412-5 (Version None)
Quarter: 2011Q1

REPORT INFORMATION
  Report Type: 
  Country: None (occurrence: None)
  Receive Date: 20110310
  Receipt Date: 20110303
  Transmission Date: 20110831
  Serious: Yes (Other)
  Sender: FDA-Public Use
  Company Number: DE-ROCHE-940321069001

PATIENT

DRUGS (1)
  1. LARIAM [Suspect]
     Indication: MALARIA PROPHYLAXIS
     Dates: end: 19940801

REACTIONS (10)
  - BRADYCARDIA NEONATAL [None]
  - HYPERBILIRUBINAEMIA NEONATAL [None]
  - RESPIRATORY DISORDER NEONATAL [None]
  - HYPOREFLEXIA [None]
  - CAESAREAN SECTION [None]
  - NEONATAL ASPHYXIA [None]
  - HYPOTONIA NEONATAL [None]
  - MATERNAL DRUGS AFFECTING FOETUS [None]
  - SMALL FOR DATES BABY [None]
  - CYANOSIS NEONATAL [None]
